FAERS Safety Report 24680642 (Version 1)
Quarter: 2024Q4

REPORT INFORMATION
  Report Type: Report from Study
  Country: ZA (occurrence: ZA)
  Receive Date: 20241129
  Receipt Date: 20241129
  Transmission Date: 20250115
  Serious: Yes (Other)
  Sender: ALEXION PHARMACEUTICALS
  Company Number: ZA-AstraZeneca-CH-00708181A

PATIENT
  Age: 84 Year

DRUGS (40)
  1. DAPAGLIFLOZIN [Suspect]
     Active Substance: DAPAGLIFLOZIN
     Indication: Diabetes mellitus
  2. DAPAGLIFLOZIN [Suspect]
     Active Substance: DAPAGLIFLOZIN
     Indication: Diabetes mellitus
  3. DAPAGLIFLOZIN [Suspect]
     Active Substance: DAPAGLIFLOZIN
  4. DAPAGLIFLOZIN [Suspect]
     Active Substance: DAPAGLIFLOZIN
  5. PERINDOPRIL [Concomitant]
     Active Substance: PERINDOPRIL
     Indication: Hypertension
     Dosage: 10 MILLIGRAM
  6. PERINDOPRIL [Concomitant]
     Active Substance: PERINDOPRIL
     Dosage: 10 MILLIGRAM
  7. PERINDOPRIL [Concomitant]
     Active Substance: PERINDOPRIL
     Dosage: 10 MILLIGRAM
  8. PERINDOPRIL [Concomitant]
     Active Substance: PERINDOPRIL
     Dosage: 10 MILLIGRAM
  9. ROSUVASTATIN [Concomitant]
     Active Substance: ROSUVASTATIN
     Indication: Blood cholesterol
  10. ROSUVASTATIN [Concomitant]
     Active Substance: ROSUVASTATIN
  11. ROSUVASTATIN [Concomitant]
     Active Substance: ROSUVASTATIN
  12. ROSUVASTATIN [Concomitant]
     Active Substance: ROSUVASTATIN
  13. MEZIBE [Concomitant]
     Indication: Hyperlipidaemia
  14. MEZIBE [Concomitant]
  15. MEZIBE [Concomitant]
  16. MEZIBE [Concomitant]
  17. ASPIRIN [Concomitant]
     Active Substance: ASPIRIN
  18. ASPIRIN [Concomitant]
     Active Substance: ASPIRIN
  19. ASPIRIN [Concomitant]
     Active Substance: ASPIRIN
  20. ASPIRIN [Concomitant]
     Active Substance: ASPIRIN
  21. ALZIDO [Concomitant]
     Indication: Dementia Alzheimer^s type
  22. ALZIDO [Concomitant]
  23. ALZIDO [Concomitant]
  24. ALZIDO [Concomitant]
  25. BRONCOL COUGH [Concomitant]
  26. BRONCOL COUGH [Concomitant]
  27. BRONCOL COUGH [Concomitant]
  28. BRONCOL COUGH [Concomitant]
  29. DICLOFENAC SODIUM [Concomitant]
     Active Substance: DICLOFENAC SODIUM
     Indication: Pain
  30. DICLOFENAC SODIUM [Concomitant]
     Active Substance: DICLOFENAC SODIUM
  31. DICLOFENAC SODIUM [Concomitant]
     Active Substance: DICLOFENAC SODIUM
  32. DICLOFENAC SODIUM [Concomitant]
     Active Substance: DICLOFENAC SODIUM
  33. ACC 600 [Concomitant]
  34. ACC 600 [Concomitant]
  35. ACC 600 [Concomitant]
  36. ACC 600 [Concomitant]
  37. EZETIMIBE [Concomitant]
     Active Substance: EZETIMIBE
     Indication: Hyperlipidaemia
  38. EZETIMIBE [Concomitant]
     Active Substance: EZETIMIBE
  39. EZETIMIBE [Concomitant]
     Active Substance: EZETIMIBE
  40. EZETIMIBE [Concomitant]
     Active Substance: EZETIMIBE

REACTIONS (1)
  - Deafness [Unknown]
